FAERS Safety Report 9457632 (Version 2)
Quarter: 2013Q3

REPORT INFORMATION
  Report Type: Spontaneous
  Country: US (occurrence: US)
  Receive Date: 20130814
  Receipt Date: 20130930
  Transmission Date: 20140515
  Serious: No
  Sender: FDA-Public Use
  Company Number: US-PFIZER INC-2013234632

PATIENT
  Sex: Female

DRUGS (2)
  1. LIPITOR [Suspect]
     Dosage: 20 MG, UNK
  2. LIPITOR [Suspect]
     Dosage: MORE THAN 20MG, UNK

REACTIONS (2)
  - Malaise [Unknown]
  - Hepatic enzyme increased [Unknown]
